FAERS Safety Report 13736711 (Version 1)
Quarter: 2017Q3

REPORT INFORMATION
  Report Type: Spontaneous
  Country: US (occurrence: US)
  Receive Date: 20170710
  Receipt Date: 20170710
  Transmission Date: 20171127
  Serious: No
  Sender: FDA-Public Use
  Company Number: US-ALLERGAN-1720675US

PATIENT
  Sex: Female
  Weight: 119.9 kg

DRUGS (19)
  1. PERPHENAZINE. [Suspect]
     Active Substance: PERPHENAZINE
     Dosage: 4 MG, QHS
     Route: 048
     Dates: start: 20170130
  2. DICLOFENAC [Concomitant]
     Active Substance: DICLOFENAC
     Dosage: 75 MG, BID
     Route: 048
     Dates: start: 20170301
  3. HYDROXYZINE [Suspect]
     Active Substance: HYDROXYZINE HYDROCHLORIDE
     Indication: INSOMNIA
     Dosage: UNK
     Route: 048
     Dates: start: 20161018, end: 20170130
  4. LEVOTHYROXINE. [Concomitant]
     Active Substance: LEVOTHYROXINE
     Indication: PRODUCT USED FOR UNKNOWN INDICATION
     Dosage: 50 ?G, QD
     Route: 048
  5. SERTRALINE [Concomitant]
     Active Substance: SERTRALINE HYDROCHLORIDE
     Indication: PRODUCT USED FOR UNKNOWN INDICATION
     Dosage: 50 MG, QAM
     Route: 048
     Dates: start: 20160505
  6. VRAYLAR [Suspect]
     Active Substance: CARIPRAZINE
     Indication: SCHIZOAFFECTIVE DISORDER
     Dosage: 4.5 MG, QHS
     Route: 048
     Dates: start: 20160927, end: 20161116
  7. KLONOPIN [Suspect]
     Active Substance: CLONAZEPAM
     Indication: GENERALISED ANXIETY DISORDER
     Dosage: 0.5 MG, BID
     Route: 048
     Dates: start: 20160817
  8. HYDROXYZINE [Suspect]
     Active Substance: HYDROXYZINE HYDROCHLORIDE
     Indication: PRURITUS
     Dosage: 25 MG, PRN
     Route: 048
     Dates: start: 20170130
  9. DEPAKOTE [Suspect]
     Active Substance: DIVALPROEX SODIUM
     Indication: SCHIZOAFFECTIVE DISORDER
     Dosage: 500 MG, BID
     Route: 048
     Dates: start: 20170509
  10. RITALIN [Suspect]
     Active Substance: METHYLPHENIDATE HYDROCHLORIDE
     Indication: PRODUCT USED FOR UNKNOWN INDICATION
     Dosage: 10 MG, BID
     Route: 048
     Dates: start: 20161018
  11. DICLOFENAC [Concomitant]
     Active Substance: DICLOFENAC
     Indication: OSTEOARTHRITIS
     Dosage: 100 MG, BID
     Route: 048
     Dates: start: 20161116, end: 20161219
  12. LOSARTAN. [Concomitant]
     Active Substance: LOSARTAN
     Indication: PRODUCT USED FOR UNKNOWN INDICATION
     Dosage: 25 MG, UNK
     Route: 048
  13. VRAYLAR [Suspect]
     Active Substance: CARIPRAZINE
     Dosage: 6 MG, QD
     Route: 048
     Dates: start: 20161116
  14. PERPHENAZINE. [Suspect]
     Active Substance: PERPHENAZINE
     Dosage: 4 MG, QHS
     Route: 048
     Dates: start: 20160505, end: 20161018
  15. DEPAKOTE [Suspect]
     Active Substance: DIVALPROEX SODIUM
     Dosage: 250 MG, QHS
     Route: 048
     Dates: start: 20170509
  16. PANTOPRAZOLE [Concomitant]
     Active Substance: PANTOPRAZOLE
     Indication: PRODUCT USED FOR UNKNOWN INDICATION
     Dosage: 40 MG, QD
     Route: 048
     Dates: start: 20170301
  17. GABAPENTIN. [Concomitant]
     Active Substance: GABAPENTIN
     Indication: INSOMNIA
     Dosage: 600 MG, QHS
     Route: 048
     Dates: start: 20170301
  18. PERPHENAZINE. [Suspect]
     Active Substance: PERPHENAZINE
     Indication: SCHIZOAFFECTIVE DISORDER
     Dosage: 8 MG, QHS
     Route: 048
     Dates: start: 20160304, end: 20170130
  19. FLUOXETINE [Concomitant]
     Active Substance: FLUOXETINE HYDROCHLORIDE
     Indication: PRODUCT USED FOR UNKNOWN INDICATION
     Dosage: 20 MG, QAM
     Route: 048
     Dates: start: 20160505, end: 20160714

REACTIONS (18)
  - Paranoia [Unknown]
  - Muscle tightness [Unknown]
  - Weight increased [Unknown]
  - Arthropathy [Unknown]
  - Hyponatraemia [Unknown]
  - Tachyphrenia [Unknown]
  - Muscle spasms [Not Recovered/Not Resolved]
  - Dysphagia [Unknown]
  - Influenza [Unknown]
  - Oculogyric crisis [Recovered/Resolved]
  - Tremor [Recovered/Resolved]
  - Muscle twitching [Unknown]
  - Feeling abnormal [Unknown]
  - Social avoidant behaviour [Unknown]
  - Skin disorder [Unknown]
  - Somnolence [Unknown]
  - Palpitations [Unknown]
  - Swelling face [Recovered/Resolved]
